FAERS Safety Report 16873529 (Version 4)
Quarter: 2020Q1

REPORT INFORMATION
  Report Type: Spontaneous
  Country: US (occurrence: US)
  Receive Date: 20191001
  Receipt Date: 20200316
  Transmission Date: 20200409
  Serious: No
  Sender: FDA-Public Use
  Company Number: US-PFIZER INC-2018188815

PATIENT
  Age: 66 Year
  Sex: Male
  Weight: 74 kg

DRUGS (5)
  1. RAPAMUNE [Suspect]
     Active Substance: SIROLIMUS
     Indication: HEART TRANSPLANT
     Dosage: 2 DF, UNK (INSTEAD OF TAKING 3 TABLETS PATIENT IS ONLY TAKING 2)
  2. RAPAMUNE [Suspect]
     Active Substance: SIROLIMUS
     Indication: PROPHYLAXIS
     Dosage: 0.5 MG, UNK  (TAKE 1 TABLET BY MOUTH ON MONDAYS AND FRIDAYS)
     Route: 048
  3. RAPAMUNE [Suspect]
     Active Substance: SIROLIMUS
     Dosage: 1 MG, DAILY[ TAKE 1MG DAILY]
  4. RAPAMUNE [Suspect]
     Active Substance: SIROLIMUS
     Dosage: 1.5 MG, UNK(1.5 MG MON, FRI)
  5. RAPAMUNE [Suspect]
     Active Substance: SIROLIMUS
     Dosage: 1 MG, UNK (1 MG TUE, WED, THURS, SAT, SUN)

REACTIONS (3)
  - Product use in unapproved indication [Unknown]
  - Laboratory test abnormal [Unknown]
  - Off label use [Unknown]
